FAERS Safety Report 9877139 (Version 2)
Quarter: 2014Q1

REPORT INFORMATION
  Report Type: Spontaneous
  Country: DE (occurrence: DE)
  Receive Date: 20140206
  Receipt Date: 20140210
  Transmission Date: 20141002
  Serious: Yes (Death, Life-Threatening)
  Sender: FDA-Public Use
  Company Number: DE-JNJFOC-20140202461

PATIENT
  Age: 77 Year
  Sex: Female
  Weight: 75 kg

DRUGS (8)
  1. XARELTO [Suspect]
     Indication: ATRIAL FIBRILLATION
     Route: 065
     Dates: start: 20131211, end: 20140118
  2. XARELTO [Suspect]
     Indication: CEREBROVASCULAR ACCIDENT PROPHYLAXIS
     Route: 065
     Dates: start: 20131211, end: 20140118
  3. MARCUMAR [Concomitant]
     Route: 065
     Dates: start: 201212, end: 201311
  4. BISO-HENNIG [Concomitant]
     Route: 048
  5. FLECAINIDE [Concomitant]
     Route: 048
  6. L-THYROXIN [Concomitant]
     Route: 048
  7. FLORADIX [Concomitant]
     Route: 065
  8. SIMVASTATIN [Concomitant]
     Route: 048

REACTIONS (2)
  - Gastrointestinal haemorrhage [Fatal]
  - Haematemesis [Fatal]
